FAERS Safety Report 9154005 (Version 1)
Quarter: 2013Q1

REPORT INFORMATION
  Report Type: Spontaneous
  Country: IT (occurrence: None)
  Receive Date: 20130207
  Receipt Date: 20130207
  Transmission Date: 20140127
  Serious: Yes (Other)
  Sender: FDA-Public Use
  Company Number: VAL_01376_2013

PATIENT
  Age: 77 Year
  Sex: Male

DRUGS (3)
  1. METOPROLOL (METOPROLOL-METOPROLOL TARTRATE) [Suspect]
     Indication: PRODUCT USED FOR UNKNOWN INDICATION
     Route: 048
     Dates: start: 20111113, end: 20121112
  2. CARVASIN [Suspect]
     Indication: VERTIGO
     Route: 060
     Dates: start: 20121112, end: 20121112
  3. TORVAST [Concomitant]

REACTIONS (3)
  - Sinus bradycardia [None]
  - Vertigo [None]
  - Presyncope [None]
